FAERS Safety Report 23625728 (Version 3)
Quarter: 2024Q3

REPORT INFORMATION
  Report Type: Spontaneous
  Country: RO (occurrence: RO)
  Receive Date: 20240313
  Receipt Date: 20240716
  Transmission Date: 20241017
  Serious: No
  Sender: CELLTRION
  Company Number: RO-CELLTRION INC.-2024RO005826

PATIENT

DRUGS (6)
  1. BEVACIZUMAB [Suspect]
     Active Substance: BEVACIZUMAB
     Indication: Hepatocellular carcinoma
     Dosage: 1200 MILLIGRAM
     Route: 065
     Dates: start: 20230516
  2. ATEZOLIZUMAB [Suspect]
     Active Substance: ATEZOLIZUMAB
     Indication: Hepatocellular carcinoma
     Dosage: ON 12/JAN/2024, RECEIVED THE MOST RECENT DOSE OF 1200 MG ATEZOLIZUMAB PRIOR TO AE
     Route: 042
     Dates: start: 20230516
  3. CYANOCOBALAMIN\LIDOCAINE HYDROCHLORIDE\PYRIDOXINE HYDROCHLORIDE\THIAMI [Concomitant]
     Active Substance: CYANOCOBALAMIN\LIDOCAINE HYDROCHLORIDE\PYRIDOXINE HYDROCHLORIDE\THIAMINE HYDROCHLORIDE
     Dosage: UNK, EVERY 0.5 DAY
     Dates: start: 20230509
  4. CARVEDILOL [Concomitant]
     Active Substance: CARVEDILOL
     Dosage: 6.25 MILLIGRAM, EVERY 0.5 DAY
     Dates: start: 20230509
  5. URSODIOL [Concomitant]
     Active Substance: URSODIOL
     Dosage: 1000 MILLIGRAM,ONCE A DAY
     Dates: start: 20230509, end: 20240228
  6. SILIMARINA [Concomitant]
     Dosage: 150 MILLIGRAM, EVERY 0.33 DAY
     Dates: start: 20230509

REACTIONS (1)
  - Intentional product use issue [Unknown]
